FAERS Safety Report 7150591-5 (Version None)
Quarter: 2010Q4

REPORT INFORMATION
  Report Type: 
  Country: None (occurrence: None)
  Receive Date: 20101210
  Receipt Date: 20101201
  Transmission Date: 20110411
  Serious: Yes (Other)
  Sender: FDA-Public Use
  Company Number: CA-JNJFOC-20101201418

PATIENT
  Age: 6 Year
  Sex: Male
  Weight: 23.13 kg

DRUGS (2)
  1. TYLENOL-500 [Suspect]
     Indication: PYREXIA
     Dosage: 2 MELTAWAYS (320MG)
     Route: 048
  2. TYLENOL-500 [Suspect]
     Route: 048

REACTIONS (3)
  - HALLUCINATION [None]
  - HYPERHIDROSIS [None]
  - SLEEP TERROR [None]
